FAERS Safety Report 7774872-7 (Version None)
Quarter: 2011Q3

REPORT INFORMATION
  Report Type: 
  Country: None (occurrence: None)
  Receive Date: 20110923
  Receipt Date: 20101122
  Transmission Date: 20111222
  Serious: No
  Sender: FDA-Public Use
  Company Number: US-ABBOTT-10P-163-0687377-00

PATIENT
  Sex: Male
  Weight: 73.548 kg

DRUGS (1)
  1. VICOPROFEN [Suspect]
     Indication: PAIN
     Dosage: TOOK FOR  2 DAYS, 2 IN 6 HOURS
     Route: 048
     Dates: start: 20100501, end: 20100501

REACTIONS (2)
  - BLOOD CANNABINOIDS INCREASED [None]
  - DIZZINESS [None]
